FAERS Safety Report 9442879 (Version 1)
Quarter: 2013Q3

REPORT INFORMATION
  Report Type: Spontaneous
  Country: US (occurrence: None)
  Receive Date: 20130805
  Receipt Date: 20130805
  Transmission Date: 20140515
  Serious: No
  Sender: FDA-Public Use
  Company Number: None

PATIENT
  Age: 25 Year
  Sex: Male

DRUGS (3)
  1. FELBATOL [Suspect]
     Indication: EPILEPSY
  2. LYRICA [Suspect]
     Indication: EPILEPSY
  3. POTIGA [Suspect]
     Indication: EPILEPSY

REACTIONS (3)
  - Weight increased [None]
  - Memory impairment [None]
  - Thinking abnormal [None]
